FAERS Safety Report 5546819-5 (Version None)
Quarter: 2007Q4

REPORT INFORMATION
  Report Type: 
  Country: None (occurrence: None)
  Receive Date: 20071126
  Receipt Date: 20070611
  Transmission Date: 20080405
  Serious: Yes (Hospitalization, Other)
  Sender: FDA-Public Use
  Company Number: 2007BH004404

PATIENT
  Age: 36 Year
  Sex: Female
  Weight: 67.5 kg

DRUGS (3)
  1. DIANEAL [Suspect]
     Indication: RENAL FAILURE CHRONIC
     Dosage: 5 L; IP
     Route: 033
  2. DIANEAL [Suspect]
     Indication: RENAL FAILURE CHRONIC
     Dosage: 2 L; IP
     Route: 033
  3. DIANEAL [Suspect]
     Indication: RENAL FAILURE CHRONIC
     Dosage: 2 L; IP
     Route: 033

REACTIONS (2)
  - PERITONITIS BACTERIAL [None]
  - POST PROCEDURAL COMPLICATION [None]
